FAERS Safety Report 6377591-7 (Version None)
Quarter: 2009Q3

REPORT INFORMATION
  Report Type: 
  Country: None (occurrence: None)
  Receive Date: 20090923
  Receipt Date: 20090923
  Transmission Date: 20100115
  Serious: Yes (Life-Threatening, Hospitalization)
  Sender: FDA-Public Use
  Company Number: None

PATIENT
  Age: 74 Year
  Sex: Male

DRUGS (8)
  1. WARFARIN [Suspect]
     Indication: THROMBOSIS PROPHYLAXIS
     Dosage: 5 MG PO QD HOME
     Route: 048
  2. CELLCEPT [Concomitant]
  3. CYA [Concomitant]
  4. DILTIAZEM [Concomitant]
  5. FOLIC ACID [Concomitant]
  6. M.V.I. [Concomitant]
  7. OMEPRAZOLE [Concomitant]
  8. PRAVASTATIN SODIUM [Concomitant]

REACTIONS (8)
  - FAILURE TO THRIVE [None]
  - HAEMOGLOBIN DECREASED [None]
  - HAEMORRHAGE [None]
  - HEPATIC HAEMATOMA [None]
  - HYPOPHAGIA [None]
  - INTERNATIONAL NORMALISED RATIO INCREASED [None]
  - PAIN [None]
  - WEIGHT DECREASED [None]
